FAERS Safety Report 17482937 (Version 1)
Quarter: 2020Q1

REPORT INFORMATION
  Report Type: Spontaneous
  Country: US (occurrence: US)
  Receive Date: 20191028
  Receipt Date: 20191028
  Transmission Date: 20200409
  Serious: Yes (Hospitalization)
  Sender: FDA-Public Use
  Company Number: None

PATIENT
  Age: 25 Year
  Sex: Male

DRUGS (5)
  1. CLONAZEPAM. [Concomitant]
     Active Substance: CLONAZEPAM
  2. OTC ZYRTEC [Concomitant]
  3. RX BENLAFLAXINE [Concomitant]
  4. WELLBUTRIN [Concomitant]
     Active Substance: BUPROPION HYDROCHLORIDE
  5. THC VAPES DANK [Suspect]
     Active Substance: .DELTA.8-TETRAHYDROCANNABINOL\DEVICE\HERBALS
     Dates: start: 201906

REACTIONS (12)
  - Weight decreased [None]
  - Night sweats [None]
  - Cough [None]
  - Dyspnoea [None]
  - Muscle atrophy [None]
  - Nausea [None]
  - Pyrexia [None]
  - Migraine [None]
  - Muscle fatigue [None]
  - Headache [None]
  - Abdominal pain [None]
  - Fatigue [None]
